FAERS Safety Report 8772928 (Version 2)
Quarter: 2012Q4

REPORT INFORMATION
  Report Type: 
  Country: DE (occurrence: DE)
  Receive Date: 20120907
  Receipt Date: 20120914
  Transmission Date: 20130627
  Serious: Yes (Death)
  Sender: FDA-Public Use
  Company Number: PHHY2012DE077660

PATIENT
  Sex: Female

DRUGS (1)
  1. CYCLOSPORIN-G [Suspect]

REACTIONS (1)
  - Death [Fatal]
